FAERS Safety Report 5041765-8 (Version None)
Quarter: 2006Q2

REPORT INFORMATION
  Report Type: 
  Country: None (occurrence: None)
  Receive Date: 20060630
  Receipt Date: 20060627
  Transmission Date: 20061013
  Serious: Yes (Other)
  Sender: FDA-Public Use
  Company Number: S06-USA-01893-01

PATIENT
  Age: 58 Year
  Sex: Female

DRUGS (6)
  1. THYROID TAB [Suspect]
     Indication: POST PROCEDURAL HYPOTHYROIDISM
     Dates: start: 19640101
  2. THYROID TAB [Suspect]
     Indication: POST PROCEDURAL HYPOTHYROIDISM
     Dosage: 90 MG QD PO
     Route: 048
     Dates: end: 20060301
  3. THYROID TAB [Suspect]
     Indication: POST PROCEDURAL HYPOTHYROIDISM
     Dosage: 15 MG QD PO
     Route: 048
     Dates: start: 20060301, end: 20060512
  4. VASOTEC [Suspect]
     Indication: HYPERTENSION
     Dosage: 5 MG TID
     Dates: end: 20060501
  5. ROCALTROL [Concomitant]
  6. ASPIRIN [Concomitant]

REACTIONS (13)
  - BLOOD GLUCOSE INCREASED [None]
  - BLOOD THYROID STIMULATING HORMONE INCREASED [None]
  - DRUG INTERACTION [None]
  - ERYTHEMA [None]
  - HEART RATE INCREASED [None]
  - HYPERTENSION [None]
  - HYPOAESTHESIA [None]
  - MENTAL IMPAIRMENT [None]
  - RASH [None]
  - THYROID DISORDER [None]
  - THYROXINE DECREASED [None]
  - TREMOR [None]
  - VERTIGO [None]
